FAERS Safety Report 23151917 (Version 5)
Quarter: 2023Q4

REPORT INFORMATION
  Report Type: Report from Study
  Country: US (occurrence: US)
  Receive Date: 20231107
  Receipt Date: 20231226
  Transmission Date: 20240109
  Serious: No
  Sender: FDA-Public Use
  Company Number: US-002147023-NVSC2023US235903

PATIENT
  Sex: Female

DRUGS (2)
  1. TRIAMCINOLONE [Suspect]
     Active Substance: TRIAMCINOLONE
     Indication: Psoriasis
     Dosage: UNK
     Route: 065
  2. COSENTYX [Suspect]
     Active Substance: SECUKINUMAB
     Indication: Psoriasis
     Dosage: 300 MG
     Route: 065

REACTIONS (12)
  - Rash [Unknown]
  - Dermatitis [Unknown]
  - Peripheral swelling [Unknown]
  - Skin burning sensation [Unknown]
  - Swelling face [Unknown]
  - Rash pruritic [Unknown]
  - Skin exfoliation [Unknown]
  - Eczema [Unknown]
  - Erythema [Unknown]
  - Pruritus [Unknown]
  - Psoriasis [Unknown]
  - Drug ineffective [Unknown]
